FAERS Safety Report 7700196-X (Version None)
Quarter: 2011Q3

REPORT INFORMATION
  Report Type: 
  Country: None (occurrence: None)
  Receive Date: 20110816
  Receipt Date: 20110812
  Transmission Date: 20111222
  Serious: Yes (Hospitalization)
  Sender: FDA-Public Use
  Company Number: 1000022775

PATIENT
  Age: 71 Year
  Sex: Female

DRUGS (7)
  1. FIORICET (AXOTAL /00727001/ (AXOTAL /00727001/) [Concomitant]
  2. XANAX [Concomitant]
  3. LABETALOL (LABETALOL) (LABETALOL) [Concomitant]
  4. DALIRESP [Suspect]
     Indication: CHRONIC OBSTRUCTIVE PULMONARY DISEASE
     Dosage: 500 MCG (500 MCG,1 IN 1 D),ORAL
     Route: 048
     Dates: start: 20110727, end: 20110731
  5. LEXAPRO (ESCITALOPRAM OXALATE) (ESCITALOPRAM OXALATE) [Concomitant]
  6. LOMOTIL (LOMOTIL) (LOMOTIL) [Concomitant]
  7. LIPITOR [Concomitant]

REACTIONS (1)
  - APPENDICITIS [None]
